FAERS Safety Report 5244959-1 (Version None)
Quarter: 2007Q1

REPORT INFORMATION
  Report Type: 
  Country: None (occurrence: None)
  Receive Date: 20070221
  Receipt Date: 20070221
  Transmission Date: 20070707
  Serious: No
  Sender: FDA-Public Use
  Company Number: None

PATIENT
  Age: 40 Year
  Sex: Female
  Weight: 60.3284 kg

DRUGS (11)
  1. TARCEVA [Suspect]
     Indication: BREAST CANCER
     Dosage: 1 TAB DAILY P.O.
     Route: 048
     Dates: start: 20070108, end: 20070218
  2. EVEROLIMUS 2.5 MG [Suspect]
     Indication: BREAST CANCER
     Dosage: 1 TAB DAILY P.O.
     Route: 048
     Dates: start: 20070108, end: 20070218
  3. CYMBALTA [Concomitant]
  4. ZOMETA [Concomitant]
  5. AMBIEN CR [Concomitant]
  6. MULTI-VITAMIN [Concomitant]
  7. FLAXSEED OIL [Concomitant]
  8. FISH OIL [Concomitant]
  9. IBUPROFEN [Concomitant]
  10. BENADRYL [Concomitant]
  11. CLARITIN [Concomitant]

REACTIONS (6)
  - ALANINE AMINOTRANSFERASE INCREASED [None]
  - ASPARTATE AMINOTRANSFERASE INCREASED [None]
  - BLOOD ALKALINE PHOSPHATASE INCREASED [None]
  - DISEASE PROGRESSION [None]
  - MALAISE [None]
  - SCLERAL DISCOLOURATION [None]
